FAERS Safety Report 6859158-7 (Version None)
Quarter: 2010Q3

REPORT INFORMATION
  Report Type: 
  Country: None (occurrence: None)
  Receive Date: 20100719
  Receipt Date: 20080221
  Transmission Date: 20110219
  Serious: No
  Sender: FDA-Public Use
  Company Number: US-PFIZER INC-2008017618

PATIENT
  Sex: Female
  Weight: 61.4 kg

DRUGS (7)
  1. CHANTIX [Suspect]
     Indication: SMOKING CESSATION THERAPY
     Dates: start: 20080101
  2. HYDROCHLOROTHIAZIDE [Concomitant]
     Indication: BLOOD PRESSURE FLUCTUATION
  3. WELLBUTRIN [Concomitant]
  4. LEXAPRO [Concomitant]
  5. ALBUTEROL [Concomitant]
     Indication: DYSPNOEA
  6. TRAZODONE HYDROCHLORIDE [Concomitant]
  7. PERCOCET [Concomitant]
     Indication: PAIN

REACTIONS (1)
  - HEADACHE [None]
